FAERS Safety Report 21076051 (Version 2)
Quarter: 2022Q3

REPORT INFORMATION
  Report Type: Spontaneous
  Country: US (occurrence: None)
  Receive Date: 20220713
  Receipt Date: 20220720
  Transmission Date: 20221026
  Serious: Yes (Hospitalization)
  Sender: FDA-Public Use
  Company Number: US-ROCHE-3133772

PATIENT
  Age: 64 Year
  Sex: Male

DRUGS (4)
  1. TECENTRIQ [Suspect]
     Active Substance: ATEZOLIZUMAB
     Indication: Small cell lung cancer
     Dosage: MAINTENANCE THERAPY WITH TECENTRIQ ALONE FOR 3 MONTHS
     Route: 041
     Dates: start: 202001, end: 202007
  2. TECENTRIQ [Suspect]
     Active Substance: ATEZOLIZUMAB
     Indication: Non-small cell lung cancer
  3. ETOPOSIDE [Concomitant]
     Active Substance: ETOPOSIDE
  4. CARBOPLATIN [Concomitant]
     Active Substance: CARBOPLATIN

REACTIONS (7)
  - Pneumonia [Not Recovered/Not Resolved]
  - Sepsis [Recovered/Resolved]
  - Cardiac disorder [Unknown]
  - Prostatic disorder [Unknown]
  - Chest pain [Unknown]
  - Pneumothorax [Recovered/Resolved]
  - Haemoptysis [Recovered/Resolved]

NARRATIVE: CASE EVENT DATE: 20201201
